FAERS Safety Report 6221852-9 (Version None)
Quarter: 2009Q2

REPORT INFORMATION
  Report Type: 
  Country: None (occurrence: None)
  Receive Date: 20090609
  Receipt Date: 20090602
  Transmission Date: 20091009
  Serious: Yes (Hospitalization)
  Sender: FDA-Public Use
  Company Number: CHPA2009US12914

PATIENT
  Sex: Female
  Weight: 56.2 kg

DRUGS (3)
  1. NICOTINE [Suspect]
     Indication: SMOKING CESSATION THERAPY
     Dosage: 21 MG, QD, TRANSDERMAL, 21 MG, QD, TRANSERMAL, 14 MG, QD, TRANSDERMAL
     Route: 062
     Dates: start: 20080501, end: 20080501
  2. NICOTINE [Suspect]
     Indication: SMOKING CESSATION THERAPY
     Dosage: 21 MG, QD, TRANSDERMAL, 21 MG, QD, TRANSERMAL, 14 MG, QD, TRANSDERMAL
     Route: 062
     Dates: start: 20090505, end: 20090501
  3. NICOTINE [Suspect]
     Indication: SMOKING CESSATION THERAPY
     Dosage: 21 MG, QD, TRANSDERMAL, 21 MG, QD, TRANSERMAL, 14 MG, QD, TRANSDERMAL
     Route: 062
     Dates: start: 20090501

REACTIONS (2)
  - FALL [None]
  - INAPPROPRIATE SCHEDULE OF DRUG ADMINISTRATION [None]
